FAERS Safety Report 7207176-1 (Version None)
Quarter: 2010Q4

REPORT INFORMATION
  Report Type: 
  Country: None (occurrence: None)
  Receive Date: 20101221
  Receipt Date: 20090724
  Transmission Date: 20110411
  Serious: Yes (Life-Threatening, Hospitalization)
  Sender: FDA-Public Use
  Company Number: HOR-2009-00005

PATIENT
  Age: 84 Year
  Sex: Female

DRUGS (5)
  1. SERTRALINE HYDROCHLORIDE [Suspect]
     Indication: DEPRESSION
     Dosage: 50 MG (50 MG, 1 IN 1 D),ORAL
     Route: 048
     Dates: start: 20090625, end: 20090630
  2. ACETYLSALICYLIC ACID [Concomitant]
  3. METOPROLOL TARTRATE [Suspect]
  4. DIGITOXIN TAB [Concomitant]
  5. SIMVASTATIN [Suspect]

REACTIONS (3)
  - HEPATIC CIRRHOSIS [None]
  - HEPATIC ENCEPHALOPATHY [None]
  - PLATELET COUNT DECREASED [None]
